FAERS Safety Report 11295004 (Version 1)
Quarter: 2015Q3

REPORT INFORMATION
  Report Type: Spontaneous
  Country: US (occurrence: None)
  Receive Date: 20150722
  Receipt Date: 20150722
  Transmission Date: 20151125
  Serious: Yes (Other)
  Sender: FDA-Public Use
  Company Number: None

PATIENT
  Age: 28 Year
  Sex: Female
  Weight: 52.62 kg

DRUGS (1)
  1. NEXPLANON [Suspect]
     Active Substance: ETONOGESTREL
     Indication: CONTRACEPTION
     Route: 058
     Dates: start: 20130701, end: 20150720

REACTIONS (13)
  - Decreased interest [None]
  - Self-injurious ideation [None]
  - Insomnia [None]
  - Emotional disorder [None]
  - Obsessive-compulsive disorder [None]
  - Feeling abnormal [None]
  - Mood swings [None]
  - Libido disorder [None]
  - Anxiety [None]
  - Alcoholism [None]
  - Stress [None]
  - Mental disorder [None]
  - Depression [None]

NARRATIVE: CASE EVENT DATE: 20150717
